FAERS Safety Report 18546713 (Version 1)
Quarter: 2020Q4

REPORT INFORMATION
  Report Type: Spontaneous
  Country: JP (occurrence: JP)
  Receive Date: 20201125
  Receipt Date: 20201125
  Transmission Date: 20210114
  Serious: Yes (Other)
  Sender: FDA-Public Use
  Company Number: JP-UCBSA-2020047899

PATIENT
  Age: 9 Decade
  Sex: Male

DRUGS (2)
  1. EXELON [Concomitant]
     Active Substance: RIVASTIGMINE TARTRATE
     Indication: PRODUCT USED FOR UNKNOWN INDICATION
     Dosage: 13.5 MG
  2. NEUPRO [Suspect]
     Active Substance: ROTIGOTINE
     Indication: PRODUCT USED FOR UNKNOWN INDICATION
     Dosage: 6 MG PATCH
     Route: 062

REACTIONS (3)
  - Depressed level of consciousness [Unknown]
  - Product dispensing error [Unknown]
  - Accidental exposure to product [Unknown]
